FAERS Safety Report 13515805 (Version 1)
Quarter: 2017Q2

REPORT INFORMATION
  Report Type: Spontaneous
  Country: BE (occurrence: BE)
  Receive Date: 20170504
  Receipt Date: 20170504
  Transmission Date: 20170830
  Serious: Yes (Disabling, Other)
  Sender: FDA-Public Use
  Company Number: BE-UCBSA-2017014884

PATIENT
  Age: 17 Year
  Sex: Female
  Weight: 60 kg

DRUGS (3)
  1. DEPAKINE [Concomitant]
     Active Substance: VALPROATE SODIUM
     Indication: EPILEPSY
     Dosage: 1800 MG, ONCE DAILY (QD)
  2. LAMICTAL [Concomitant]
     Active Substance: LAMOTRIGINE
     Indication: EPILEPSY
     Dosage: 250 MG, ONCE DAILY (QD)
  3. VIMPAT [Suspect]
     Active Substance: LACOSAMIDE
     Indication: EPILEPSY
     Dosage: 50 MG, 2X/DAY (BID)
     Dates: start: 20161005, end: 20161125

REACTIONS (3)
  - Anal incontinence [Recovered/Resolved]
  - Abnormal behaviour [Recovered/Resolved with Sequelae]
  - Urinary incontinence [Recovering/Resolving]

NARRATIVE: CASE EVENT DATE: 201610
